FAERS Safety Report 4864181-8 (Version None)
Quarter: 2005Q4

REPORT INFORMATION
  Report Type: 
  Country: None (occurrence: None)
  Receive Date: 20051219
  Receipt Date: 20051206
  Transmission Date: 20060501
  Serious: Yes (Life-Threatening, Other)
  Sender: FDA-Public Use
  Company Number: HQWYE893507DEC05

PATIENT
  Age: 8 Year
  Sex: Female

DRUGS (7)
  1. ZOSYN (POPERACILLIN/TAZOBACTAM, INJECTION) [Suspect]
     Indication: SEPTIC SHOCK
  2. CLINDAMYCIN [Suspect]
     Indication: SEPTIC SHOCK
  3. NOREPINEPHRINE BITARTRATE [Concomitant]
  4. PREDNISONE [Concomitant]
  5. REMICADE [Concomitant]
  6. ROFECOXIB [Concomitant]
  7. ANBESOL (BENZOCAINE/PHENOL) [Concomitant]

REACTIONS (5)
  - ACUTE RESPIRATORY DISTRESS SYNDROME [None]
  - CONDITION AGGRAVATED [None]
  - DRUG HYPERSENSITIVITY [None]
  - POST PROCEDURAL COMPLICATION [None]
  - RASH [None]
